FAERS Safety Report 5401427-1 (Version None)
Quarter: 2007Q3

REPORT INFORMATION
  Report Type: 
  Country: None (occurrence: None)
  Receive Date: 20070726
  Receipt Date: 20070713
  Transmission Date: 20080115
  Serious: Yes (Death)
  Sender: FDA-Public Use
  Company Number: 2007US001616

PATIENT
  Age: 42 Year
  Sex: Female

DRUGS (3)
  1. PROGRAF [Suspect]
     Indication: DRUG USE FOR UNKNOWN INDICATION
     Dosage: 2 MG, BID, ORAL
     Route: 048
  2. OMEPRAZOLE [Concomitant]
  3. FOLIC ACID [Concomitant]

REACTIONS (2)
  - BONE MARROW TRANSPLANT [None]
  - INFECTION [None]
